FAERS Safety Report 15385503 (Version 1)
Quarter: 2018Q3

REPORT INFORMATION
  Report Type: Spontaneous
  Country: JP (occurrence: JP)
  Receive Date: 20180914
  Receipt Date: 20180914
  Transmission Date: 20181010
  Serious: Yes (Hospitalization)
  Sender: FDA-Public Use
  Company Number: JP-TEVA-2018-JP-954200

PATIENT
  Age: 15 Month
  Sex: Male

DRUGS (5)
  1. PREDNISOLONE. [Suspect]
     Active Substance: PREDNISOLONE
     Dosage: DAYS 9 TO 17
     Route: 042
  2. THEOPHYLLINE [Concomitant]
     Active Substance: THEOPHYLLINE ANHYDROUS
     Dosage: DAYS 3 TO 34; FOLLOWED BY ORAL ADMINISTRATION
     Route: 042
  3. MIDAZOLAM [Concomitant]
     Active Substance: MIDAZOLAM HYDROCHLORIDE
     Indication: SEDATIVE THERAPY
     Dosage: DAY 3 TO 9 MONOTHERAPY AND DAYS 17 TO 27 ALONG WITH FENTANYL
     Route: 065
  4. METHYLPREDNISOLONE. [Suspect]
     Active Substance: METHYLPREDNISOLONE
     Dosage: DAYS 1 TO 9; DAY 17 TO 32; 3?6MG/KG/DAY
     Route: 042
  5. FENTANYL. [Concomitant]
     Active Substance: FENTANYL
     Indication: SEDATIVE THERAPY
     Dosage: DAYS 17 TO 27 ALONG WITH MIDAZOLAM
     Route: 065

REACTIONS (1)
  - Intensive care unit acquired weakness [Recovered/Resolved]
